FAERS Safety Report 9248065 (Version 1)
Quarter: 2013Q1

REPORT INFORMATION
  Report Type: Spontaneous
  Country: US (occurrence: None)
  Receive Date: 20130305
  Receipt Date: 20130305
  Transmission Date: 20140127
  Serious: Yes (Other)
  Sender: FDA-Public Use
  Company Number: 163-21880-12100966

PATIENT
  Age: 58 Year
  Sex: Male
  Weight: 68.95 kg

DRUGS (4)
  1. REVLIMID [Suspect]
     Indication: PLASMA CELL MYELOMA
     Route: 048
     Dates: start: 20100101
  2. CALCIUM(CALCIUM) [Concomitant]
  3. COUMADIN (WARFARIN SODIUM) [Concomitant]
  4. ZOMETA ( ZOLEDRONIC ACID) [Concomitant]

REACTIONS (1)
  - Blood potassium decreased [None]
